FAERS Safety Report 8382123-8 (Version None)
Quarter: 2012Q2

REPORT INFORMATION
  Report Type: 
  Country: None (occurrence: None)
  Receive Date: 20120524
  Receipt Date: 20120523
  Transmission Date: 20120825
  Serious: Yes (Other)
  Sender: FDA-Public Use
  Company Number: US-PFIZER INC-2012125174

PATIENT
  Age: 38 Year
  Sex: Male

DRUGS (1)
  1. CHANTIX [Suspect]
     Indication: SMOKING CESSATION THERAPY
     Dosage: UNK
     Dates: start: 20120201, end: 20120401

REACTIONS (3)
  - ABNORMAL DREAMS [None]
  - FEELING ABNORMAL [None]
  - SUICIDAL IDEATION [None]
